FAERS Safety Report 21229879 (Version 1)
Quarter: 2022Q3

REPORT INFORMATION
  Report Type: Spontaneous
  Country: CL (occurrence: CL)
  Receive Date: 20220818
  Receipt Date: 20220818
  Transmission Date: 20221026
  Serious: Yes (Other)
  Sender: FDA-Public Use
  Company Number: CL-009507513-2203CHL007744

PATIENT
  Sex: Female

DRUGS (1)
  1. INVANZ [Suspect]
     Active Substance: ERTAPENEM SODIUM
     Indication: Urinary tract infection
     Dosage: 1 DAILY AMPOULE FOR 7 DAYS
     Route: 042
     Dates: start: 20220321, end: 20220327

REACTIONS (9)
  - Premature separation of placenta [Recovered/Resolved]
  - Caesarean section [Unknown]
  - Premature delivery [Unknown]
  - Urinary tract infection [Recovered/Resolved]
  - Vomiting [Recovered/Resolved]
  - Headache [Recovered/Resolved]
  - Product availability issue [Unknown]
  - Expired product administered [Unknown]
  - Maternal exposure during pregnancy [Recovered/Resolved]

NARRATIVE: CASE EVENT DATE: 20220101
